FAERS Safety Report 18303708 (Version 3)
Quarter: 2021Q1

REPORT INFORMATION
  Report Type: Spontaneous
  Country: US (occurrence: US)
  Receive Date: 20200923
  Receipt Date: 20210113
  Transmission Date: 20210419
  Serious: Yes (Other)
  Sender: FDA-Public Use
  Company Number: US-TEVA-2020-US-1830327

PATIENT
  Age: 58 Year
  Sex: Female

DRUGS (1)
  1. FENTANYL. [Suspect]
     Active Substance: FENTANYL
     Indication: PRODUCT USED FOR UNKNOWN INDICATION
     Route: 065
     Dates: start: 20140418, end: 20140418

REACTIONS (7)
  - Contraindicated product administered [Unknown]
  - Respiratory disorder [Recovered/Resolved]
  - Dyspnoea [Recovered/Resolved]
  - Adverse event [Unknown]
  - Apparent death [Recovered/Resolved]
  - Loss of consciousness [Recovered/Resolved]
  - Endoscopy [Recovered/Resolved]

NARRATIVE: CASE EVENT DATE: 20140418
